FAERS Safety Report 25638638 (Version 2)
Quarter: 2025Q4

REPORT INFORMATION
  Report Type: Report from Study
  Country: US (occurrence: US)
  Receive Date: 20250804
  Receipt Date: 20251003
  Transmission Date: 20260117
  Serious: No
  Sender: BIOGEN
  Company Number: US-BIOGEN-2025BI01318936

PATIENT
  Sex: Female

DRUGS (2)
  1. ZURZUVAE [Suspect]
     Active Substance: ZURANOLONE
     Indication: Perinatal depression
     Route: 050
     Dates: start: 20250616, end: 20250617
  2. ZURZUVAE [Suspect]
     Active Substance: ZURANOLONE
     Route: 050
     Dates: start: 202507

REACTIONS (1)
  - Somnolence [Unknown]
